FAERS Safety Report 9163678 (Version 1)
Quarter: 2013Q1

REPORT INFORMATION
  Report Type: Spontaneous
  Country: AT (occurrence: AT)
  Receive Date: 20130314
  Receipt Date: 20130314
  Transmission Date: 20140127
  Serious: Yes (Other)
  Sender: FDA-Public Use
  Company Number: AT-ACTELION-A-CH2013-80379

PATIENT
  Age: 65 Year
  Sex: Female
  Weight: 43 kg

DRUGS (6)
  1. TRACLEER [Suspect]
     Indication: SKIN ULCER
     Dosage: 62.5 MG, BID
     Route: 048
     Dates: start: 20130121, end: 20130207
  2. CLOPIDOGREL [Concomitant]
  3. METHYLPREDNISOLON [Concomitant]
  4. CALCIUMCARBONAT [Concomitant]
  5. VITAMIN D3 [Concomitant]
  6. DICLOFENAC [Concomitant]

REACTIONS (2)
  - Vertigo [Recovered/Resolved with Sequelae]
  - Hypotension [Recovered/Resolved with Sequelae]
